FAERS Safety Report 10677201 (Version 2)
Quarter: 2014Q4

REPORT INFORMATION
  Report Type: Report from Study
  Country: RU (occurrence: RU)
  Receive Date: 20141226
  Receipt Date: 20141230
  Transmission Date: 20150529
  Serious: Yes (Life-Threatening, Hospitalization)
  Sender: FDA-Public Use
  Company Number: PHHY2014RU168595

PATIENT
  Age: 55 Year
  Sex: Female

DRUGS (4)
  1. NO TREATMENT RECEIVED [Suspect]
     Active Substance: UNSPECIFIED INGREDIENT
     Indication: PRODUCT USED FOR UNKNOWN INDICATION
     Route: 065
  2. IMATINIB [Concomitant]
     Active Substance: IMATINIB
     Indication: ERYTHROLEUKAEMIA
     Route: 048
     Dates: start: 20080201, end: 20130808
  3. TASIGNA [Suspect]
     Active Substance: NILOTINIB
     Indication: ERYTHROLEUKAEMIA
     Route: 048
     Dates: start: 20130809
  4. METHOTREXATE [Concomitant]
     Active Substance: METHOTREXATE
     Indication: RHEUMATOID ARTHRITIS
     Dosage: 7.5 MG, UNK
     Route: 065

REACTIONS (4)
  - Fatigue [Unknown]
  - Chest pain [Unknown]
  - Acute myocardial infarction [Recovered/Resolved]
  - Coronary artery disease [Recovered/Resolved]

NARRATIVE: CASE EVENT DATE: 20131218
